FAERS Safety Report 10970234 (Version 2)
Quarter: 2015Q3

REPORT INFORMATION
  Report Type: Spontaneous
  Country: US (occurrence: US)
  Receive Date: 20150331
  Receipt Date: 20150812
  Transmission Date: 20151125
  Serious: Yes (Other)
  Sender: FDA-Public Use
  Company Number: US-PFIZER INC-2015112156

PATIENT
  Age: 57 Year
  Sex: Female
  Weight: 68 kg

DRUGS (16)
  1. LIPITOR [Suspect]
     Active Substance: ATORVASTATIN CALCIUM
     Indication: BLOOD CHOLESTEROL INCREASED
     Dosage: 10 MG, 1X/DAY
     Route: 048
     Dates: start: 20031118
  2. DETROL LA [Concomitant]
     Active Substance: TOLTERODINE TARTRATE
     Indication: URINARY INCONTINENCE
     Dosage: 4 MG, 1X/DAY
     Dates: start: 2007, end: 2014
  3. GELATIN [Concomitant]
     Active Substance: GELATIN
     Indication: NAIL DISORDER
  4. PANTOPRAZOLE [Concomitant]
     Active Substance: PANTOPRAZOLE SODIUM
     Indication: GASTROOESOPHAGEAL REFLUX DISEASE
     Dosage: 40 MG, (ONCE DAILY OR EVERY OTHER DAY)
     Dates: start: 2009
  5. GELATIN [Concomitant]
     Active Substance: GELATIN
     Indication: HAIR DISORDER
     Dosage: 1X/DAY (10 GRAINS ONCE DAILY AT NIGHT)
     Dates: end: 20120417
  6. VITAMIN A/G PRO [Concomitant]
     Indication: HAIR DISORDER
     Dosage: UNK, 2X/DAY (AT NIGHT)
     Dates: start: 2009, end: 2012
  7. BIOTIN [Concomitant]
     Active Substance: BIOTIN
     Indication: NAIL DISORDER
  8. PANTOPRAZOLE [Concomitant]
     Active Substance: PANTOPRAZOLE SODIUM
     Indication: DYSPEPSIA
  9. COENZYME Q10 [Concomitant]
     Active Substance: UBIDECARENONE
     Indication: ANTIOXIDANT THERAPY
     Dosage: 100 MG, 1X/DAY (AT NIGHT)
  10. LIPITOR [Suspect]
     Active Substance: ATORVASTATIN CALCIUM
     Dosage: 40 MG, 1X/DAY
     Route: 048
  11. BIOTIN [Concomitant]
     Active Substance: BIOTIN
     Indication: HAIR DISORDER
     Dosage: 5000 MG, 1X/DAY (AT NIGHT)
     Dates: start: 2009, end: 2012
  12. LOSARTAN. [Concomitant]
     Active Substance: LOSARTAN
     Indication: HYPERTENSION
     Dosage: (100 MG, NOW 50 MG ONCE DAILY, HALF TABLET AT NIGHT)
     Dates: start: 2000
  13. VITAMIN WOMEN?S 50?S PLUS [Concomitant]
     Indication: ROUTINE HEALTH MAINTENANCE
     Dosage: UNK, 1X/DAY (AT NIGHT)
     Dates: start: 2000
  14. VITAMIN A/G PRO [Concomitant]
     Indication: NAIL DISORDER
  15. VITAMIN D3 [Concomitant]
     Active Substance: CHOLECALCIFEROL
     Indication: BONE DENSITY DECREASED
     Dosage: 2000 IU, 1X/DAY
     Dates: start: 2009
  16. LIPITOR [Suspect]
     Active Substance: ATORVASTATIN CALCIUM
     Indication: BLOOD TRIGLYCERIDES INCREASED
     Dosage: 20 MG, 1X/DAY
     Route: 048

REACTIONS (1)
  - Type 2 diabetes mellitus [Not Recovered/Not Resolved]

NARRATIVE: CASE EVENT DATE: 20110617
